FAERS Safety Report 6016723-7 (Version None)
Quarter: 2008Q4

REPORT INFORMATION
  Report Type: 
  Country: None (occurrence: None)
  Receive Date: 20081222
  Receipt Date: 20081217
  Transmission Date: 20090506
  Serious: Yes (Hospitalization)
  Sender: FDA-Public Use
  Company Number: US-B.I. PHARMACEUTICALS,INC./RIDGEFIELD-2008-BP-18875BP

PATIENT
  Sex: Female

DRUGS (7)
  1. SPIRIVA [Suspect]
     Indication: CHRONIC OBSTRUCTIVE PULMONARY DISEASE
     Dosage: 18MCG
     Route: 055
     Dates: start: 20050101
  2. SPIRIVA [Suspect]
     Indication: EMPHYSEMA
  3. ARAVA [Concomitant]
     Indication: ARTHRITIS
  4. PLAQUENIL [Concomitant]
     Indication: ARTHRITIS
  5. ANTIDEPRESSANTS [Concomitant]
     Indication: DEPRESSION
  6. EFFEXOR [Concomitant]
     Indication: DEPRESSION
  7. VITAMINS [Concomitant]
     Indication: VITAMIN SUPPLEMENTATION

REACTIONS (2)
  - PAIN [None]
  - PNEUMONIA [None]
